FAERS Safety Report 14680537 (Version 1)
Quarter: 2018Q1

REPORT INFORMATION
  Report Type: Spontaneous
  Country: US (occurrence: US)
  Receive Date: 20180324
  Receipt Date: 20180324
  Transmission Date: 20180509
  Serious: Yes (Hospitalization)
  Sender: FDA-Public Use
  Company Number: None

PATIENT
  Sex: Male

DRUGS (28)
  1. MYCOPHENOLATE  500MG [Suspect]
     Active Substance: MYCOPHENOLIC ACID
     Indication: TRANSPLANT
     Route: 048
     Dates: start: 20160805
  2. SODIUM BICAR [Concomitant]
  3. OSELTAMIVIR [Concomitant]
     Active Substance: OSELTAMIVIR
  4. ALLOPURINOL. [Concomitant]
     Active Substance: ALLOPURINOL
  5. OMEPRAZOLE. [Concomitant]
     Active Substance: OMEPRAZOLE
  6. ALCOHOL PREP PAD [Concomitant]
     Active Substance: ISOPROPYL ALCOHOL
  7. AMOXICILLIN. [Concomitant]
     Active Substance: AMOXICILLIN
  8. MYCOPHENOLATE 250MG [Suspect]
     Active Substance: MYCOPHENOLIC ACID
     Indication: TRANSPLANT
     Route: 048
     Dates: start: 20160805
  9. ZOLPIDEM [Concomitant]
     Active Substance: ZOLPIDEM\ZOLPIDEM TARTRATE
  10. VALGANCICLOV [Concomitant]
  11. METOPROL SUC [Concomitant]
  12. WARFARIN [Concomitant]
     Active Substance: WARFARIN
  13. DICYCLOMINE [Concomitant]
     Active Substance: DICYCLOMINE HYDROCHLORIDE
  14. CHLORHEX GLU [Concomitant]
  15. LANTUS [Concomitant]
     Active Substance: INSULIN GLARGINE
  16. OXYCODONE AND ACETAMINOPHEN [Concomitant]
     Active Substance: ACETAMINOPHEN\OXYCODONE HYDROCHLORIDE
  17. PRODIGY [Concomitant]
  18. ADVAIR DISKU [Concomitant]
  19. ROSUVASTATIN. [Concomitant]
     Active Substance: ROSUVASTATIN
  20. AMOXICILLIN CLAV [Concomitant]
  21. CYCLOSPORINE. [Concomitant]
     Active Substance: CYCLOSPORINE
  22. CLOPIDOGREL [Concomitant]
     Active Substance: CLOPIDOGREL BISULFATE
  23. VALACYCLOVIR [Concomitant]
     Active Substance: VALACYCLOVIR HYDROCHLORIDE
  24. DICLOFENAC [Concomitant]
     Active Substance: DICLOFENAC
  25. TRAZODONE [Concomitant]
     Active Substance: TRAZODONE HYDROCHLORIDE
  26. LIDOCAINE. [Concomitant]
     Active Substance: LIDOCAINE
  27. NYSTATIN. [Concomitant]
     Active Substance: NYSTATIN
  28. FLUCONAZOLE. [Concomitant]
     Active Substance: FLUCONAZOLE

REACTIONS (1)
  - Hospitalisation [None]
